FAERS Safety Report 19223994 (Version 1)
Quarter: 2021Q2

REPORT INFORMATION
  Report Type: Spontaneous
  Country: US (occurrence: US)
  Receive Date: 20210506
  Receipt Date: 20210506
  Transmission Date: 20210717
  Serious: Yes (Death, Hospitalization, Other)
  Sender: FDA-Public Use
  Company Number: None

PATIENT
  Age: 57 Year
  Sex: Male

DRUGS (1)
  1. BAMLANIVIMAB. [Suspect]
     Active Substance: BAMLANIVIMAB
     Indication: COVID-19
     Dates: start: 20210312, end: 20210312

REACTIONS (6)
  - Hypoaesthesia oral [None]
  - Hypoxia [None]
  - Paraesthesia oral [None]
  - COVID-19 pneumonia [None]
  - Hypotension [None]
  - Acute respiratory failure [None]

NARRATIVE: CASE EVENT DATE: 20210312
